FAERS Safety Report 7892321-5 (Version None)
Quarter: 2011Q4

REPORT INFORMATION
  Report Type: 
  Country: None (occurrence: None)
  Receive Date: 20111104
  Receipt Date: 20111027
  Transmission Date: 20120403
  Serious: Yes (Death)
  Sender: FDA-Public Use
  Company Number: IE-AMGEN-IRLSP2011055648

PATIENT
  Age: 70 Year
  Sex: Female

DRUGS (6)
  1. NU SEALS [Concomitant]
  2. LEVEMIR [Concomitant]
  3. ZOPICLONE [Concomitant]
  4. ARANESP [Suspect]
     Indication: RENAL FAILURE CHRONIC
     Dosage: 30 MUG, Q2WK
     Route: 058
     Dates: start: 20110829, end: 20111023
  5. FUROSEMIDE [Concomitant]
  6. DIAMICRON [Concomitant]

REACTIONS (1)
  - DEATH [None]
